FAERS Safety Report 22089698 (Version 4)
Quarter: 2023Q2

REPORT INFORMATION
  Report Type: Spontaneous
  Country: IL (occurrence: IL)
  Receive Date: 20230313
  Receipt Date: 20230609
  Transmission Date: 20230722
  Serious: Yes (Hospitalization, Other)
  Sender: FDA-Public Use
  Company Number: IL-ALXN-A202302949

PATIENT
  Age: 6 Year
  Sex: Female

DRUGS (1)
  1. KANUMA [Suspect]
     Active Substance: SEBELIPASE ALFA
     Indication: Lysosomal acid lipase deficiency
     Dosage: 4.5 MG/KG, QW
     Route: 065
     Dates: start: 2017

REACTIONS (4)
  - Ascites [Recovered/Resolved]
  - Post procedural infection [Recovered/Resolved]
  - Inguinal hernia [Unknown]
  - Infusion site pain [Unknown]

NARRATIVE: CASE EVENT DATE: 20230201
